FAERS Safety Report 24592523 (Version 2)
Quarter: 2024Q4

REPORT INFORMATION
  Report Type: Report from Study
  Country: DE (occurrence: DE)
  Receive Date: 20241108
  Receipt Date: 20241209
  Transmission Date: 20250115
  Serious: Yes (Other)
  Sender: CSL BEHRING
  Company Number: DE-BEH-2024183564

PATIENT
  Age: 63 Year
  Sex: Male
  Weight: 88 kg

DRUGS (5)
  1. HIZENTRA [Suspect]
     Active Substance: HUMAN IMMUNOGLOBULIN G
     Indication: Chronic inflammatory demyelinating polyradiculoneuropathy
     Dosage: 10 G 2X, BIW
     Route: 058
     Dates: start: 20241002
  2. LEVODOPA [Concomitant]
     Active Substance: LEVODOPA
     Dosage: 125 MG, QID
  3. AMANTADINE [Concomitant]
     Active Substance: AMANTADINE
     Dosage: 100 MG, BID
  4. CARBIDOPA\LEVODOPA [Concomitant]
     Active Substance: CARBIDOPA\LEVODOPA
     Dosage: 2 DF PER NIGHT
     Dates: start: 2023
  5. NEUPRO [Concomitant]
     Active Substance: ROTIGOTINE
     Dosage: 8 MG, QD
     Dates: start: 2022

REACTIONS (2)
  - Parkinson^s disease [Not Recovered/Not Resolved]
  - Mobility decreased [Not Recovered/Not Resolved]
